FAERS Safety Report 8114961-0 (Version None)
Quarter: 2012Q1

REPORT INFORMATION
  Report Type: 
  Country: None (occurrence: None)
  Receive Date: 20120131
  Receipt Date: 20120109
  Transmission Date: 20120608
  Serious: Yes (Hospitalization)
  Sender: FDA-Public Use
  Company Number: 0224710

PATIENT

DRUGS (4)
  1. TRAMADOL HYDROHLORIDE [Concomitant]
  2. TACHOSIL [Suspect]
     Indication: SURGERY
     Dates: start: 20100124
  3. FRAGMIN [Concomitant]
  4. PLASIL (METOCLOPRAMIDE HYDROCHLORIDE) [Concomitant]

REACTIONS (5)
  - PERITONEAL HAEMORRHAGE [None]
  - VENOUS HAEMORRHAGE [None]
  - SURGICAL PROCEDURE REPEATED [None]
  - ANAEMIA [None]
  - POST PROCEDURAL HAEMORRHAGE [None]
